FAERS Safety Report 6984812 (Version 3)
Quarter: 2014Q2

REPORT INFORMATION
  Report Type: Spontaneous
  Country: US (occurrence: US)
  Receive Date: 20090501
  Receipt Date: 20140415
  Transmission Date: 20141212
  Serious: Yes (Hospitalization)
  Sender: FDA-Public Use
  Company Number: US-ALEXION-A200800347

PATIENT
  Age: 44 Year
  Sex: Female

DRUGS (2)
  1. SOLIRIS [Suspect]
     Indication: PAROXYSMAL NOCTURNAL HAEMOGLOBINURIA
     Dosage: 900 MG, Q3WKS
     Route: 042
  2. WARFARIN [Concomitant]
     Indication: ANTICOAGULANT THERAPY

REACTIONS (3)
  - Cholecystitis [Recovered/Resolved]
  - Condition aggravated [Unknown]
  - Haemoglobin decreased [Unknown]
